FAERS Safety Report 11252274 (Version 1)
Quarter: 2015Q3

REPORT INFORMATION
  Report Type: Spontaneous
  Country: US (occurrence: US)
  Receive Date: 20150708
  Receipt Date: 20150708
  Transmission Date: 20151125
  Serious: Yes (Death, Other)
  Sender: FDA-Public Use
  Company Number: US-ELI_LILLY_AND_COMPANY-US201308004100

PATIENT
  Age: 25 Year
  Sex: Male

DRUGS (11)
  1. BUSPAR [Concomitant]
     Active Substance: BUSPIRONE HYDROCHLORIDE
     Dosage: 60 MG, QD
  2. PROZAC [Suspect]
     Active Substance: FLUOXETINE HYDROCHLORIDE
     Indication: DEPRESSION
  3. SUBOXONE [Concomitant]
     Active Substance: BUPRENORPHINE HYDROCHLORIDE\NALOXONE HYDROCHLORIDE
  4. LAMICTAL [Concomitant]
     Active Substance: LAMOTRIGINE
     Dosage: 200 MG, QD
  5. GEODON [Concomitant]
     Active Substance: ZIPRASIDONE HYDROCHLORIDE\ZIPRASIDONE MESYLATE
  6. PROZAC [Suspect]
     Active Substance: FLUOXETINE HYDROCHLORIDE
     Indication: GENERALISED ANXIETY DISORDER
     Dosage: 80 MG, QD
     Dates: start: 20130322
  7. NEURONTIN [Concomitant]
     Active Substance: GABAPENTIN
     Dosage: 600 MG, TID
  8. HALCION [Concomitant]
     Active Substance: TRIAZOLAM
  9. SEROQUEL [Concomitant]
     Active Substance: QUETIAPINE FUMARATE
     Dosage: 200 MG, EACH EVENING
  10. HALDOL [Concomitant]
     Active Substance: HALOPERIDOL
  11. CLONIDINE. [Concomitant]
     Active Substance: CLONIDINE

REACTIONS (2)
  - Intentional overdose [Not Recovered/Not Resolved]
  - Completed suicide [Fatal]

NARRATIVE: CASE EVENT DATE: 20130621
